FAERS Safety Report 19731009 (Version 1)
Quarter: 2021Q3

REPORT INFORMATION
  Report Type: Spontaneous
  Country: CN (occurrence: CN)
  Receive Date: 20210821
  Receipt Date: 20210821
  Transmission Date: 20211014
  Serious: Yes (Hospitalization)
  Sender: FDA-Public Use
  Company Number: NVSC2021CN186405

PATIENT
  Age: 6 Year
  Sex: Female

DRUGS (3)
  1. SANDIMMUN [Suspect]
     Active Substance: CYCLOSPORINE
     Indication: GRAFT VERSUS HOST DISEASE
     Dosage: 0.030 G, BID (786 NG/ML)
     Route: 041
     Dates: start: 20210726, end: 20210730
  2. SANDIMMUN [Suspect]
     Active Substance: CYCLOSPORINE
     Dosage: 0.017 G, BID
     Route: 041
     Dates: start: 20210803, end: 20210806
  3. SANDIMMUN [Suspect]
     Active Substance: CYCLOSPORINE
     Dosage: 0.022 G, BID
     Route: 041
     Dates: start: 20210730, end: 20210803

REACTIONS (1)
  - Alanine aminotransferase increased [Recovering/Resolving]

NARRATIVE: CASE EVENT DATE: 20210804
